FAERS Safety Report 8578510-5 (Version None)
Quarter: 2012Q3

REPORT INFORMATION
  Report Type: 
  Country: None (occurrence: None)
  Receive Date: 20120808
  Receipt Date: 20120726
  Transmission Date: 20120928
  Serious: Yes (Hospitalization)
  Sender: FDA-Public Use
  Company Number: JP-VERTEX PHARMACEUTICALS INC.-AE-2012-010948

PATIENT
  Age: 49 Year
  Sex: Female

DRUGS (20)
  1. RIBAVIRIN [Suspect]
     Indication: HEPATITIS C
     Route: 048
     Dates: start: 20120305, end: 20120724
  2. ZOMIG [Concomitant]
     Indication: MIGRAINE
     Route: 048
     Dates: start: 20120213
  3. ZOLOFT [Concomitant]
     Indication: INSOMNIA
     Route: 048
     Dates: start: 20120604
  4. ROHYPNOL [Concomitant]
     Dates: start: 20120723
  5. GLAKAY [Concomitant]
     Indication: ANAEMIA PROPHYLAXIS
     Route: 048
  6. MARZULENE S [Concomitant]
     Indication: ABDOMINAL DISCOMFORT
     Route: 048
  7. LENDORMIN [Concomitant]
     Indication: INSOMNIA
     Route: 048
     Dates: end: 20120610
  8. RIBAVIRIN [Suspect]
     Route: 048
  9. ANTEBATE [Concomitant]
     Indication: RASH
     Dates: start: 20120305
  10. RABEPRAZOLE SODIUM [Concomitant]
     Indication: ABDOMINAL DISCOMFORT
     Route: 048
  11. ANTEBATE [Concomitant]
     Indication: PYREXIA
  12. ROHYPNOL [Concomitant]
     Indication: INSOMNIA
     Route: 048
     Dates: start: 20120702
  13. PEGASYS [Suspect]
     Indication: HEPATITIS C
     Route: 058
     Dates: start: 20120725, end: 20120725
  14. RINDERON A [Concomitant]
     Indication: RASH
     Dates: start: 20120723
  15. LIVACT [Concomitant]
     Indication: HEPATITIS C
     Route: 048
  16. LORAZEPAM [Concomitant]
     Indication: INSOMNIA
     Route: 048
     Dates: start: 20120723
  17. GASMOTIN [Concomitant]
     Indication: ABDOMINAL DISCOMFORT
     Route: 048
  18. VX-950 [Suspect]
     Indication: HEPATITIS C
     Route: 048
     Dates: start: 20120305, end: 20120528
  19. ETODOLAC [Concomitant]
     Indication: HEPATITIS C
     Route: 048
     Dates: start: 20120305
  20. ETODOLAC [Concomitant]

REACTIONS (1)
  - BLOOD CREATINE PHOSPHOKINASE INCREASED [None]
